FAERS Safety Report 5236782-9 (Version None)
Quarter: 2007Q1

REPORT INFORMATION
  Report Type: 
  Country: None (occurrence: None)
  Receive Date: 20070213
  Receipt Date: 20070207
  Transmission Date: 20070707
  Serious: Yes (Hospitalization)
  Sender: FDA-Public Use
  Company Number: PT-BRISTOL-MYERS SQUIBB COMPANY-13675277

PATIENT
  Sex: Male

DRUGS (1)
  1. FOSITEN [Suspect]
     Indication: HYPERTENSION
     Route: 048

REACTIONS (1)
  - HEPATIC ENZYME INCREASED [None]
